FAERS Safety Report 5083056-5 (Version None)
Quarter: 2006Q3

REPORT INFORMATION
  Report Type: 
  Country: None (occurrence: None)
  Receive Date: 20060814
  Receipt Date: 20060727
  Transmission Date: 20061208
  Serious: Yes (Hospitalization)
  Sender: FDA-Public Use
  Company Number: DSA_28444_2006

PATIENT
  Age: 33 Year
  Sex: Female

DRUGS (2)
  1. TAVOR           /00273201/ [Suspect]
     Dosage: 5 MG ONCE PO
     Route: 048
     Dates: start: 20060706, end: 20060706
  2. ATOSIL /00133602/ [Suspect]
     Dosage: 100 MG ONCE PO
     Route: 048
     Dates: start: 20060706, end: 20060706

REACTIONS (4)
  - MULTIPLE DRUG OVERDOSE INTENTIONAL [None]
  - SOMNOLENCE [None]
  - SUICIDE ATTEMPT [None]
  - TACHYCARDIA [None]
